FAERS Safety Report 21610663 (Version 1)
Quarter: 2022Q4

REPORT INFORMATION
  Report Type: Spontaneous
  Country: US (occurrence: US)
  Receive Date: 20221117
  Receipt Date: 20221117
  Transmission Date: 20230113
  Serious: Yes (Other)
  Sender: FDA-Public Use
  Company Number: US-009507513-2211USA003876

PATIENT
  Age: 76 Year
  Sex: Male

DRUGS (1)
  1. KEYTRUDA [Suspect]
     Active Substance: PEMBROLIZUMAB
     Indication: Head and neck cancer
     Dosage: 4 SEPARATE 200 MILLIGRAM, EVERY THREE WEEK (Q3W)
     Dates: start: 2022

REACTIONS (1)
  - Tumour flare [Unknown]

NARRATIVE: CASE EVENT DATE: 20220101
